FAERS Safety Report 9289141 (Version 1)
Quarter: 2013Q2

REPORT INFORMATION
  Report Type: Spontaneous
  Country: DE (occurrence: DE)
  Receive Date: 20130514
  Receipt Date: 20130514
  Transmission Date: 20140414
  Serious: Yes (Hospitalization)
  Sender: FDA-Public Use
  Company Number: DE-ELI_LILLY_AND_COMPANY-DE201305001327

PATIENT
  Sex: Female

DRUGS (5)
  1. FORSTEO [Suspect]
     Indication: OSTEOPOROSIS
     Dosage: UNK, QD
     Route: 058
     Dates: start: 20120213
  2. TARGIN [Concomitant]
     Dosage: UNK, UNKNOWN
     Route: 065
  3. IBUPROFEN [Concomitant]
     Dosage: UNK, UNKNOWN
     Route: 065
  4. ASS [Concomitant]
     Dosage: 100 DF, UNKNOWN
     Route: 065
  5. RAMIPRIL [Concomitant]
     Dosage: UNK UNK, QD
     Route: 065

REACTIONS (1)
  - Retracted nipple [Recovered/Resolved]
